FAERS Safety Report 6684922-7 (Version None)
Quarter: 2010Q2

REPORT INFORMATION
  Report Type: 
  Country: None (occurrence: None)
  Receive Date: 20100416
  Receipt Date: 20100409
  Transmission Date: 20101027
  Serious: Yes (Death)
  Sender: FDA-Public Use
  Company Number: AU-SANOFI-AVENTIS-2010SA020745

PATIENT
  Sex: Male

DRUGS (3)
  1. RILUTEK [Suspect]
     Route: 048
     Dates: start: 20090601
  2. PERINDOPRIL ERBUMINE [Concomitant]
     Indication: DRUG USE FOR UNKNOWN INDICATION
     Route: 065
  3. LIPEX [Concomitant]
     Indication: DRUG USE FOR UNKNOWN INDICATION
     Route: 065

REACTIONS (2)
  - COMA [None]
  - RESPIRATORY ARREST [None]
